FAERS Safety Report 6672321-3 (Version None)
Quarter: 2010Q2

REPORT INFORMATION
  Report Type: 
  Country: None (occurrence: None)
  Receive Date: 20100408
  Receipt Date: 20100405
  Transmission Date: 20101027
  Serious: Yes (Hospitalization)
  Sender: FDA-Public Use
  Company Number: US-ELI_LILLY_AND_COMPANY-US201004000901

PATIENT
  Age: 78 Year
  Sex: Female

DRUGS (4)
  1. HUMALOG [Suspect]
     Dosage: UNK, AS NEEDED
  2. HUMALOG [Suspect]
  3. LANTUS [Concomitant]
  4. WATER PILLS [Concomitant]

REACTIONS (4)
  - CATARACT [None]
  - DRUG DISPENSING ERROR [None]
  - TOE AMPUTATION [None]
  - VISUAL ACUITY REDUCED [None]
